FAERS Safety Report 12270071 (Version 1)
Quarter: 2016Q2

REPORT INFORMATION
  Report Type: Spontaneous
  Country: TR (occurrence: TR)
  Receive Date: 20160415
  Receipt Date: 20160415
  Transmission Date: 20160815
  Serious: Yes (Other)
  Sender: FDA-Public Use
  Company Number: TR-BAUSCH-BL-2016-008541

PATIENT
  Age: 16 Year
  Sex: Female

DRUGS (1)
  1. SERTACONAZOLE [Suspect]
     Active Substance: SERTACONAZOLE
     Indication: VULVOVAGINAL CANDIDIASIS
     Route: 065

REACTIONS (1)
  - Accelerated idioventricular rhythm [Recovered/Resolved]
